FAERS Safety Report 9894039 (Version 1)
Quarter: 2014Q1

REPORT INFORMATION
  Report Type: Spontaneous
  Country: US (occurrence: US)
  Receive Date: 20140213
  Receipt Date: 20140213
  Transmission Date: 20141002
  Serious: Yes (Other)
  Sender: FDA-Public Use
  Company Number: US-PFIZER INC-2014038626

PATIENT
  Age: 19 Year
  Sex: Male

DRUGS (4)
  1. MORPHINE SULFATE [Suspect]
     Indication: DRUG DEPENDENCE
     Dosage: UNK
     Route: 048
  2. DILAUDID [Suspect]
     Indication: DRUG DEPENDENCE
     Dosage: UNK
     Route: 048
  3. OXYCONTIN [Suspect]
     Indication: DRUG DEPENDENCE
     Dosage: UNK
     Route: 048
  4. HEROIN [Suspect]
     Indication: POLYSUBSTANCE DEPENDENCE
     Dosage: UNK
     Route: 065

REACTIONS (1)
  - Polysubstance dependence [Unknown]
